FAERS Safety Report 4343564-9 (Version None)
Quarter: 2004Q2

REPORT INFORMATION
  Report Type: 
  Country: None (occurrence: None)
  Receive Date: 20040419
  Receipt Date: 20040409
  Transmission Date: 20050107
  Serious: Yes (Other)
  Sender: FDA-Public Use
  Company Number: 30019064-NA01-1

PATIENT
  Age: 69 Year
  Sex: Male
  Weight: 40 kg

DRUGS (13)
  1. EXTRANEAL [Suspect]
     Indication: PERITONEAL DIALYSIS
     Dosage: 7.5 % ICODEXTRIN 2L QD IP
     Route: 033
     Dates: start: 20040308, end: 20040323
  2. DIANEAL PD-2 W/ DEXTROSE 1.5% [Concomitant]
  3. PRAVASTATIN SODIUM [Concomitant]
  4. ETHYL ICOSAPENTATE [Concomitant]
  5. PHENYTOIN SODIUM [Concomitant]
  6. TICLOPIDINE HYDROCHLORIDE [Concomitant]
  7. ACARBOSE [Concomitant]
  8. TEPRENONE [Concomitant]
  9. CALCIUM CARBONATE [Concomitant]
  10. BIFIDOBACTERIUM [Concomitant]
  11. ALLOPURINOL TAB [Concomitant]
  12. FUROSEMIDE [Concomitant]
  13. ESSENTIAL AMINO ACIDS [Concomitant]

REACTIONS (2)
  - DYSPNOEA [None]
  - STRIDOR [None]
